FAERS Safety Report 16596974 (Version 2)
Quarter: 2019Q3

REPORT INFORMATION
  Report Type: Spontaneous
  Country: US (occurrence: US)
  Receive Date: 20190719
  Receipt Date: 20190725
  Transmission Date: 20191004
  Serious: Yes (Other)
  Sender: FDA-Public Use
  Company Number: US-DRREDDYS-USA/USA/19/0112118

PATIENT
  Age: 56 Year
  Sex: Male

DRUGS (7)
  1. TACROLIMUS. [Suspect]
     Active Substance: TACROLIMUS
     Indication: IMMUNOSUPPRESSION
     Dosage: EVERY OTHER WEEK
     Route: 065
  2. TENOFOVIR DISOPROXIL FUMARATE. [Concomitant]
     Active Substance: TENOFOVIR DISOPROXIL FUMARATE
     Indication: HIV INFECTION
  3. DOLUTEGRAVIR [Concomitant]
     Active Substance: DOLUTEGRAVIR
     Indication: HIV INFECTION
  4. TACROLIMUS. [Interacting]
     Active Substance: TACROLIMUS
     Route: 065
  5. ATAZANAVIR W/RITONAVIR [Interacting]
     Active Substance: ATAZANAVIR\RITONAVIR
     Indication: HIV INFECTION
     Route: 065
  6. PREDNISONE. [Concomitant]
     Active Substance: PREDNISONE
     Indication: IMMUNOSUPPRESSION
  7. EMTRICITABINE [Concomitant]
     Active Substance: EMTRICITABINE
     Indication: HIV INFECTION

REACTIONS (6)
  - Blood bilirubin decreased [Recovered/Resolved]
  - Drug level decreased [Recovered/Resolved]
  - Transplant rejection [Recovered/Resolved]
  - Drug withdrawal syndrome [Recovered/Resolved]
  - Liver function test increased [Recovered/Resolved]
  - Drug interaction [Recovered/Resolved]
